FAERS Safety Report 4847916-X (Version None)
Quarter: 2005Q4

REPORT INFORMATION
  Report Type: 
  Country: None (occurrence: None)
  Receive Date: 20051206
  Receipt Date: 20051206
  Transmission Date: 20060501
  Serious: Yes (Hospitalization)
  Sender: FDA-Public Use
  Company Number: None

PATIENT
  Age: 78 Year
  Sex: Male
  Weight: 95.2554 kg

DRUGS (7)
  1. AZACITIDINE [Suspect]
     Indication: ACUTE MYELOID LEUKAEMIA
     Dosage: 75MG/M2 SQ DAYS 1-7
     Route: 058
     Dates: start: 20050629, end: 20050912
  2. AZACITIDINE [Suspect]
     Indication: MYELODYSPLASTIC SYNDROME
     Dosage: 75MG/M2 SQ DAYS 1-7
     Route: 058
     Dates: start: 20050629, end: 20050912
  3. GEMTUZUMAB OZPGAMICIN [Suspect]
     Indication: ACUTE MYELOID LEUKAEMIA
     Dosage: 3MG/M2 IVPB ON DAY 8
     Dates: start: 20050706, end: 20050913
  4. GEMTUZUMAB OZPGAMICIN [Suspect]
     Indication: MYELODYSPLASTIC SYNDROME
     Dosage: 3MG/M2 IVPB ON DAY 8
     Dates: start: 20050706, end: 20050913
  5. ACETAMINOPHEN [Concomitant]
  6. LEVOTHYROXINE SODIUM [Concomitant]
  7. DOCUSATE SODIUM [Concomitant]

REACTIONS (9)
  - ABDOMINAL PAIN [None]
  - BILIARY DYSKINESIA [None]
  - BLOOD BILIRUBIN INCREASED [None]
  - CAECITIS [None]
  - COMPUTERISED TOMOGRAM ABNORMAL [None]
  - CONSTIPATION [None]
  - RECTAL TENESMUS [None]
  - RENAL CYST [None]
  - SHOULDER PAIN [None]
